FAERS Safety Report 7629963-8 (Version None)
Quarter: 2011Q3

REPORT INFORMATION
  Report Type: 
  Country: None (occurrence: None)
  Receive Date: 20110722
  Receipt Date: 20110718
  Transmission Date: 20111222
  Serious: Yes (Hospitalization, Other)
  Sender: FDA-Public Use
  Company Number: US-MERCK-1007USA03395

PATIENT
  Age: 52 Year
  Sex: Female

DRUGS (3)
  1. PREMARIN [Concomitant]
     Route: 065
  2. FOSAMAX [Suspect]
     Indication: OSTEOPOROSIS
     Route: 048
     Dates: start: 19960501, end: 20010905
  3. FOSAMAX [Suspect]
     Route: 048
     Dates: start: 20010906, end: 20080401

REACTIONS (41)
  - ANXIETY [None]
  - BRONCHITIS [None]
  - OTITIS MEDIA [None]
  - AMNESIA [None]
  - SPINAL OSTEOARTHRITIS [None]
  - NASAL CONGESTION [None]
  - PNEUMONIA [None]
  - CHORIORETINAL SCAR [None]
  - CONTUSION [None]
  - EAR PAIN [None]
  - ACUTE SINUSITIS [None]
  - FOLLICULITIS [None]
  - VITAMIN D DEFICIENCY [None]
  - ATROPHIC VULVOVAGINITIS [None]
  - TOOTH FRACTURE [None]
  - TOOTH DISORDER [None]
  - LIPODYSTROPHY ACQUIRED [None]
  - CATARACT [None]
  - FEMUR FRACTURE [None]
  - ANAEMIA [None]
  - THROMBOCYTOPENIA [None]
  - GASTROOESOPHAGEAL REFLUX DISEASE [None]
  - FOOT FRACTURE [None]
  - SEBORRHOEIC KERATOSIS [None]
  - CONJUNCTIVITIS INFECTIVE [None]
  - HIP FRACTURE [None]
  - INSOMNIA [None]
  - LIMB INJURY [None]
  - MUSCULOSKELETAL PAIN [None]
  - GENITAL HERPES [None]
  - ARTHROPATHY [None]
  - ASTHENIA [None]
  - LIMB ASYMMETRY [None]
  - PATHOLOGICAL FRACTURE [None]
  - MYALGIA [None]
  - PUNCTATE KERATITIS [None]
  - CHALAZION [None]
  - ABDOMINAL PAIN UPPER [None]
  - BLEPHARITIS [None]
  - MEIBOMIAN GLAND DYSFUNCTION [None]
  - STAPHYLOCOCCAL SKIN INFECTION [None]
